FAERS Safety Report 18419955 (Version 1)
Quarter: 2020Q4

REPORT INFORMATION
  Report Type: Spontaneous
  Country: CN (occurrence: CN)
  Receive Date: 20201023
  Receipt Date: 20201023
  Transmission Date: 20210114
  Serious: Yes (Hospitalization)
  Sender: FDA-Public Use
  Company Number: CN-GLAXOSMITHKLINE-CN2020APC207558

PATIENT
  Age: 35 Year
  Sex: Male

DRUGS (2)
  1. SODIUM CHLORIDE INJECTION [Suspect]
     Active Substance: SODIUM CHLORIDE
     Indication: PRODUCT USED FOR UNKNOWN INDICATION
     Dosage: 100 ML, BID, 0.9%
     Route: 041
     Dates: start: 20201014, end: 20201014
  2. ZINACEF [Suspect]
     Active Substance: CEFUROXIME SODIUM
     Indication: DERMATITIS CONTACT
     Dosage: 1.5 G, BID
     Route: 041
     Dates: start: 20201014, end: 20201014

REACTIONS (4)
  - Chest discomfort [Recovering/Resolving]
  - Pruritus [Recovering/Resolving]
  - Rash [Recovering/Resolving]
  - Lip swelling [Recovering/Resolving]

NARRATIVE: CASE EVENT DATE: 20201014
